FAERS Safety Report 9379060 (Version 1)
Quarter: 2013Q3

REPORT INFORMATION
  Report Type: Spontaneous
  Country: US (occurrence: US)
  Receive Date: 20130702
  Receipt Date: 20130702
  Transmission Date: 20140515
  Serious: No
  Sender: FDA-Public Use
  Company Number: US-009507513-1306USA014701

PATIENT
  Sex: Female

DRUGS (3)
  1. LOSARTAN POTASSIUM TABLETS [Suspect]
     Indication: HYPERTENSION
     Dosage: 1 DF, QD
     Route: 048
  2. TRICOR (ADENOSINE) [Concomitant]
  3. BUTICAPS [Concomitant]

REACTIONS (2)
  - Dysphagia [Recovering/Resolving]
  - Headache [Recovering/Resolving]
